FAERS Safety Report 5164367-1 (Version None)
Quarter: 2006Q4

REPORT INFORMATION
  Report Type: 
  Country: None (occurrence: None)
  Receive Date: 20061129
  Receipt Date: 20061129
  Transmission Date: 20070319
  Serious: Yes (Other)
  Sender: FDA-Public Use
  Company Number: None

PATIENT
  Age: 86 Year
  Sex: Female
  Weight: 74.8435 kg

DRUGS (12)
  1. SEROQUEL [Suspect]
     Indication: HALLUCINATION
     Dosage: ONE   BEDTIME   ORALLY
     Route: 048
     Dates: start: 20060917
  2. EXELON [Concomitant]
  3. ZENICAP [Concomitant]
  4. LEVOXYL [Concomitant]
  5. NEXIUM [Concomitant]
  6. ZOLOFT [Concomitant]
  7. LASIX [Concomitant]
  8. ASPIRIN [Concomitant]
  9. LORPESSOR [Concomitant]
  10. POTASSIUM CHLORIDE [Concomitant]
  11. VITAMIN E [Concomitant]
  12. ASCORBIC ACID [Concomitant]

REACTIONS (3)
  - DEPRESSED LEVEL OF CONSCIOUSNESS [None]
  - FALL [None]
  - HYPERSOMNIA [None]
